FAERS Safety Report 4677657-3 (Version None)
Quarter: 2005Q2

REPORT INFORMATION
  Report Type: 
  Country: None (occurrence: None)
  Receive Date: 20050531
  Receipt Date: 20030324
  Transmission Date: 20051028
  Serious: Yes (Hospitalization, Other)
  Sender: FDA-Public Use
  Company Number: US-BRISTOL-MYERS SQUIBB COMPANY-12200846

PATIENT
  Age: 66 Year
  Sex: Female

DRUGS (18)
  1. CISPLATIN [Suspect]
     Indication: NEOPLASM MALIGNANT
     Route: 042
     Dates: start: 20010709, end: 20010910
  2. CETUXIMAB [Suspect]
     Indication: NEOPLASM MALIGNANT
     Dosage: 400 MG/M2
     Route: 042
     Dates: start: 20010910, end: 20010910
  3. BENADRYL [Concomitant]
     Indication: CHILLS
     Dates: start: 20010709, end: 20010709
  4. BENADRYL [Concomitant]
     Indication: BLOOD PRESSURE INCREASED
     Dates: start: 20010709, end: 20010709
  5. SOLU-CORTEF [Concomitant]
     Indication: CHILLS
     Dates: start: 20010709, end: 20010709
  6. SOLU-CORTEF [Concomitant]
     Indication: BLOOD PRESSURE INCREASED
     Dates: start: 20010709, end: 20010709
  7. PRILOSEC [Concomitant]
     Indication: GASTROOESOPHAGEAL REFLUX DISEASE
     Dates: start: 20010712
  8. PRILOSEC [Concomitant]
     Indication: ABDOMINAL PAIN UPPER
     Dates: start: 20010712
  9. COMPAZINE [Concomitant]
     Indication: VOMITING
     Dates: start: 20010709
  10. K-DUR 10 [Concomitant]
     Indication: HYPOKALAEMIA
     Dosage: 60 MEQ DAILY 14-JUL TO 01-AUG-2001
     Dates: start: 20010709, end: 20010709
  11. SENOKOT [Concomitant]
     Indication: CONSTIPATION
     Dates: start: 20010714
  12. LACTULOSE [Concomitant]
     Indication: CONSTIPATION
     Dates: start: 20010714
  13. ZOFRAN [Concomitant]
     Indication: PROPHYLAXIS
     Dates: start: 20010709, end: 20010709
  14. EPOGEN [Concomitant]
     Indication: ANAEMIA
     Dates: start: 20010716, end: 20010716
  15. MANNITOL [Concomitant]
     Indication: PROPHYLAXIS
     Dates: start: 20010709, end: 20010709
  16. SOLU-MEDROL [Concomitant]
     Indication: PREMEDICATION
     Dosage: 60 MG AND 40 MG
     Dates: start: 20010709, end: 20010715
  17. MAGNESIUM SULFATE [Concomitant]
     Indication: PROPHYLAXIS
     Dates: start: 20010709, end: 20010709
  18. COLACE [Concomitant]
     Indication: CONSTIPATION
     Dates: start: 20010714, end: 20010715

REACTIONS (5)
  - ABDOMINAL PAIN UPPER [None]
  - CONFUSIONAL STATE [None]
  - DEHYDRATION [None]
  - GASTROOESOPHAGEAL REFLUX DISEASE [None]
  - UROSEPSIS [None]
